FAERS Safety Report 8248267-6 (Version None)
Quarter: 2012Q1

REPORT INFORMATION
  Report Type: 
  Country: None (occurrence: None)
  Receive Date: 20120330
  Receipt Date: 20120326
  Transmission Date: 20120608
  Serious: Yes (Hospitalization)
  Sender: FDA-Public Use
  Company Number: JP-VERTEX PHARMACEUTICALS INC.-AE-2012-002670

PATIENT
  Age: 61 Year
  Sex: Female

DRUGS (8)
  1. ENALAPRIL MALEATE [Concomitant]
     Route: 048
     Dates: end: 20120315
  2. PEGINTERFERON [Concomitant]
     Indication: HEPATITIS C
     Route: 058
     Dates: start: 20120209
  3. AMLODIPINE [Concomitant]
     Route: 048
     Dates: end: 20120315
  4. TELAVIC (TELAPREVIR) [Suspect]
     Indication: HEPATITIS C
     Route: 048
     Dates: start: 20120209, end: 20120321
  5. TELAVIC (TELAPREVIR) [Suspect]
     Route: 048
     Dates: start: 20120322
  6. RIBAVIRIN [Concomitant]
     Route: 048
     Dates: start: 20120210, end: 20120307
  7. RIBAVIRIN [Concomitant]
     Indication: HEPATITIS C
     Route: 048
     Dates: start: 20120209, end: 20120209
  8. RIBAVIRIN [Concomitant]
     Route: 048
     Dates: start: 20120308

REACTIONS (3)
  - BLOOD CREATININE INCREASED [None]
  - RASH [None]
  - BLOOD URIC ACID INCREASED [None]
